FAERS Safety Report 6578556-2 (Version None)
Quarter: 2010Q1

REPORT INFORMATION
  Report Type: 
  Country: None (occurrence: None)
  Receive Date: 20100211
  Receipt Date: 20100208
  Transmission Date: 20100710
  Serious: Yes (Hospitalization)
  Sender: FDA-Public Use
  Company Number: US-GILEAD-2010-0026955

PATIENT
  Sex: Female
  Weight: 70.824 kg

DRUGS (21)
  1. LETAIRIS [Suspect]
     Indication: PULMONARY ARTERIAL HYPERTENSION
     Route: 048
     Dates: start: 20090523
  2. DIGOXIN [Concomitant]
  3. LASIX [Concomitant]
  4. ADCIRCA [Concomitant]
  5. OXYCODONE HCL [Concomitant]
  6. OXYGEN [Concomitant]
  7. PREDNISONE TAB [Concomitant]
  8. MECLIZINE [Concomitant]
  9. K-FLEX [Concomitant]
  10. POTASSIUM CHLORIDE [Concomitant]
  11. MEDROL [Concomitant]
  12. DETROL [Concomitant]
  13. REFRESH EYE DROP [Concomitant]
  14. RESTORIL [Concomitant]
  15. FERROUS SULFATE TAB [Concomitant]
  16. ARAVA [Concomitant]
  17. NITROFURANTOIN [Concomitant]
  18. PREVACID [Concomitant]
  19. VITAMIN D [Concomitant]
  20. CALCIUM [Concomitant]
  21. NAPROSYN [Concomitant]

REACTIONS (1)
  - ARTHROPATHY [None]
